FAERS Safety Report 8511844 (Version 6)
Quarter: 2013Q2

REPORT INFORMATION
  Report Type: Spontaneous
  Country: US (occurrence: US)
  Receive Date: 20120413
  Receipt Date: 20130502
  Transmission Date: 20140414
  Serious: Yes (Other)
  Sender: FDA-Public Use
  Company Number: US-ASTRAZENECA-2011SE77809

PATIENT
  Age: 81 Year
  Sex: Female

DRUGS (2)
  1. NEXIUM [Suspect]
     Route: 048
  2. NEXIUM [Suspect]
     Dosage: TAKING 1 CAPSULE INSTEAD OF 2 CAPSULES
     Route: 048

REACTIONS (12)
  - Precancerous cells present [Unknown]
  - Barrett^s oesophagus [Unknown]
  - Aphagia [Unknown]
  - Limb injury [Unknown]
  - Nervousness [Unknown]
  - Regurgitation [Unknown]
  - Oesophageal discomfort [Unknown]
  - Malaise [Unknown]
  - Vomiting [Unknown]
  - Off label use [Unknown]
  - Intentional drug misuse [Unknown]
  - Drug dose omission [Unknown]
